FAERS Safety Report 4777611-7 (Version None)
Quarter: 2005Q3

REPORT INFORMATION
  Report Type: 
  Country: None (occurrence: None)
  Receive Date: 20050921
  Receipt Date: 20050901
  Transmission Date: 20060218
  Serious: Yes (Other)
  Sender: FDA-Public Use
  Company Number: USA0507102495

PATIENT
  Age: 71 Year
  Sex: Female
  Weight: 53 kg

DRUGS (19)
  1. FORTEO [Suspect]
     Indication: OSTEOPOROSIS
     Dates: start: 20040601
  2. HUMALOG [Suspect]
  3. NORVASC [Concomitant]
  4. CALCIUM GLUCONATE [Concomitant]
  5. TRAZADONE (TRAZODONE) [Concomitant]
  6. SYNTHROID [Concomitant]
  7. ZYRTEC [Concomitant]
  8. NIZATIDINE [Concomitant]
  9. LANTUS [Concomitant]
  10. LIPITOR [Concomitant]
  11. IMIPRAMINE [Concomitant]
  12. CIPRO [Concomitant]
  13. ESTRADERM [Concomitant]
  14. HYOSCYAMINE [Concomitant]
  15. LORAZEPAM [Concomitant]
  16. CHLORZOXAZONE [Concomitant]
  17. BUTALBITAL [Concomitant]
  18. ASTELIN [Concomitant]
  19. ACETIC ACID [Concomitant]

REACTIONS (6)
  - ARTHRALGIA [None]
  - BACK PAIN [None]
  - BLADDER CANCER [None]
  - MITRAL VALVE PROLAPSE [None]
  - PAIN IN EXTREMITY [None]
  - PHARMACEUTICAL PRODUCT COMPLAINT [None]
